FAERS Safety Report 7636072-0 (Version None)
Quarter: 2011Q3

REPORT INFORMATION
  Report Type: 
  Country: None (occurrence: None)
  Receive Date: 20110722
  Receipt Date: 20110722
  Transmission Date: 20111222
  Serious: No
  Sender: FDA-Public Use
  Company Number: None

PATIENT
  Age: 85 Year
  Sex: Female
  Weight: 43.9989 kg

DRUGS (1)
  1. AMOXICILLIN AND CLAVULANATE POTASSIUM [Suspect]
     Indication: BRONCHOPNEUMONIA
     Dosage: 500 MG/125 MG - ORAL 1 TAB. 2X DAILY ORAL 11/17/09; REFILL 11/24/09
     Route: 048

REACTIONS (16)
  - PARKINSONISM [None]
  - BLOOD PRESSURE ABNORMAL [None]
  - DIARRHOEA [None]
  - PULSE ABNORMAL [None]
  - PAIN [None]
  - INNER EAR DISORDER [None]
  - THYROID FUNCTION TEST ABNORMAL [None]
  - SYNCOPE [None]
  - PNEUMONIA [None]
  - FATIGUE [None]
  - ASTHENIA [None]
  - EYE PAIN [None]
  - DYSPNOEA [None]
  - ASTHENOPIA [None]
  - DIZZINESS [None]
  - WEIGHT DECREASED [None]
